FAERS Safety Report 8710028 (Version 3)
Quarter: 2013Q1

REPORT INFORMATION
  Report Type: Report from Study
  Country: JP (occurrence: JP)
  Receive Date: 20120806
  Receipt Date: 20130319
  Transmission Date: 20140127
  Serious: Yes (Hospitalization)
  Sender: FDA-Public Use
  Company Number: JP-ABBOTT-12P-087-0962124-00

PATIENT
  Age: 50 Year
  Sex: Male

DRUGS (5)
  1. KALETRA TABLETS [Suspect]
     Indication: HIV INFECTION
     Route: 048
     Dates: start: 20111221
  2. RITONAVIR [Concomitant]
     Indication: HIV INFECTION
     Dosage: DAILY DOSE 200 MG
     Route: 048
     Dates: end: 20111220
  3. FOSAMPRENAVIR CALCIUM [Concomitant]
     Indication: HIV INFECTION
     Route: 048
     Dates: end: 20111220
  4. ABACAVIR SULFATE W/LAMIVUDINE [Concomitant]
     Indication: HIV INFECTION
     Dosage: DAILY DOSE 1 DOSAGE FORMS
     Route: 048
     Dates: end: 20120109
  5. RALTEGRAVIR POTASSIUM [Concomitant]
     Indication: HIV INFECTION
     Dosage: DAILY DOSE 800 MG
     Route: 048
     Dates: start: 20120110

REACTIONS (2)
  - Mycobacterium avium complex infection [Recovering/Resolving]
  - Pyrexia [Unknown]
